FAERS Safety Report 17058064 (Version 1)
Quarter: 2019Q4

REPORT INFORMATION
  Report Type: Spontaneous
  Country: CN (occurrence: CN)
  Receive Date: 20191121
  Receipt Date: 20191121
  Transmission Date: 20200122
  Serious: Yes (Disabling)
  Sender: FDA-Public Use
  Company Number: CN-PFIZER INC-2019498753

PATIENT
  Age: 87 Year
  Sex: Female
  Weight: 53 kg

DRUGS (4)
  1. CEFTAZIDIME. [Concomitant]
     Active Substance: CEFTAZIDIME
     Indication: EMPHYSEMA
  2. ESOMEPRAZOLE SODIUM. [Suspect]
     Active Substance: ESOMEPRAZOLE SODIUM
     Indication: VOMITING
     Dosage: 40 MG, 1X/DAY
     Route: 041
     Dates: start: 20191015
  3. CEFTAZIDIME. [Concomitant]
     Active Substance: CEFTAZIDIME
     Indication: BRONCHITIS CHRONIC
     Dosage: 2 G, 2X/DAY
     Route: 041
     Dates: start: 20191020, end: 20191027
  4. LIPITOR [Suspect]
     Active Substance: ATORVASTATIN CALCIUM
     Indication: CARDIAC FAILURE
     Dosage: 20 MG, 1X/DAY (QN)
     Route: 048
     Dates: start: 20191025

REACTIONS (2)
  - Transaminases increased [Recovering/Resolving]
  - Gamma-glutamyltransferase increased [Recovering/Resolving]

NARRATIVE: CASE EVENT DATE: 20191101
